FAERS Safety Report 5953072-7 (Version None)
Quarter: 2008Q4

REPORT INFORMATION
  Report Type: 
  Country: None (occurrence: None)
  Receive Date: 20081114
  Receipt Date: 20071112
  Transmission Date: 20090506
  Serious: No
  Sender: FDA-Public Use
  Company Number: US-BRISTOL-MYERS SQUIBB COMPANY-13979620

PATIENT
  Age: 48 Year
  Sex: Female
  Weight: 113 kg

DRUGS (5)
  1. GLUCOPHAGE XR [Suspect]
     Dosage: INITIALLY PATIENT RECEIVED 500 MG.
  2. HUMULIN N [Concomitant]
  3. AVAPRO [Concomitant]
  4. ATENOLOL [Concomitant]
  5. ALLOPURINOL [Concomitant]

REACTIONS (2)
  - ABDOMINAL DISCOMFORT [None]
  - DIARRHOEA [None]
